FAERS Safety Report 19832507 (Version 1)
Quarter: 2021Q3

REPORT INFORMATION
  Report Type: Spontaneous
  Country: GB (occurrence: GB)
  Receive Date: 20210914
  Receipt Date: 20210914
  Transmission Date: 20211014
  Serious: Yes (Other)
  Sender: FDA-Public Use
  Company Number: GB-PERRIGO-21GB024326

PATIENT

DRUGS (7)
  1. METFORMIN [Concomitant]
     Active Substance: METFORMIN HYDROCHLORIDE
     Dates: start: 20210217
  2. IBUPROFEN. [Suspect]
     Active Substance: IBUPROFEN
     Indication: PRODUCT USED FOR UNKNOWN INDICATION
     Route: 048
  3. CLOBETASONE BUTYRATE [Concomitant]
     Active Substance: CLOBETASONE BUTYRATE
     Dosage: APPLY 1?2 TIMES/DAY
     Dates: start: 20200814
  4. CO?DYDRAMOL [Concomitant]
     Active Substance: ACETAMINOPHEN\DIHYDROCODEINE
     Dosage: TAKE 1 OR 2 FOUR TIMES/DAY
     Dates: start: 20210901
  5. FLUCLOXACILLIN [Concomitant]
     Active Substance: FLUCLOXACILLIN
     Dates: start: 20210622, end: 20210629
  6. LANSOPRAZOLE. [Concomitant]
     Active Substance: LANSOPRAZOLE
     Dates: start: 20201217
  7. VENTOLIN [Concomitant]
     Active Substance: ALBUTEROL SULFATE
     Route: 055
     Dates: start: 20210824

REACTIONS (3)
  - Pruritus [Unknown]
  - Rash [Recovered/Resolved]
  - Swelling face [Unknown]
